FAERS Safety Report 21705379 (Version 1)
Quarter: 2022Q4

REPORT INFORMATION
  Report Type: Spontaneous
  Country: IT (occurrence: None)
  Receive Date: 20221209
  Receipt Date: 20221209
  Transmission Date: 20230113
  Serious: Yes (Other)
  Sender: FDA-Public Use
  Company Number: 2022A399285

PATIENT
  Age: 68 Year
  Sex: Female

DRUGS (1)
  1. ANDEXANET ALFA [Suspect]
     Active Substance: ANDEXANET ALFA
     Indication: Ill-defined disorder
     Route: 040
     Dates: start: 20220720

REACTIONS (4)
  - Rectal haemorrhage [Unknown]
  - Shock haemorrhagic [Unknown]
  - Diverticulum intestinal haemorrhagic [Unknown]
  - Off label use [Recovered/Resolved]

NARRATIVE: CASE EVENT DATE: 20220720
